FAERS Safety Report 6655169-5 (Version None)
Quarter: 2010Q1

REPORT INFORMATION
  Report Type: 
  Country: None (occurrence: None)
  Receive Date: 20100329
  Receipt Date: 20100316
  Transmission Date: 20100710
  Serious: Yes (Other)
  Sender: FDA-Public Use
  Company Number: ES-ELI_LILLY_AND_COMPANY-ES201003003939

PATIENT
  Age: 79 Year
  Sex: Female
  Weight: 80 kg

DRUGS (3)
  1. FORTEO [Suspect]
     Indication: OSTEOPOROSIS
     Dosage: 20 UG, UNKNOWN
     Route: 058
     Dates: start: 20091201, end: 20100101
  2. PREGABALIN [Concomitant]
     Dosage: UNK, UNKNOWN
     Route: 048
     Dates: start: 20091127, end: 20100101
  3. HIDROMORFONA [Concomitant]
     Dosage: UNK, UNKNOWN
     Route: 048
     Dates: start: 20091127, end: 20100101

REACTIONS (1)
  - LEUKOCYTOCLASTIC VASCULITIS [None]
